FAERS Safety Report 15673015 (Version 1)
Quarter: 2018Q4

REPORT INFORMATION
  Report Type: Spontaneous
  Country: US (occurrence: US)
  Receive Date: 20181129
  Receipt Date: 20181129
  Transmission Date: 20190205
  Serious: No
  Sender: FDA-Public Use
  Company Number: US-BEH-2018097154

PATIENT
  Sex: Male

DRUGS (3)
  1. PRIVIGEN [Suspect]
     Active Substance: HUMAN IMMUNOGLOBULIN G
     Indication: GUILLAIN-BARRE SYNDROME
     Dosage: 110 G, Q3W
     Route: 042
     Dates: start: 2017
  2. LISINOPRIL. [Concomitant]
     Active Substance: LISINOPRIL
     Dosage: 40 MG, UNK
     Route: 065
  3. SYNTHROID [Concomitant]
     Active Substance: LEVOTHYROXINE SODIUM
     Dosage: 300 ?G, UNK
     Route: 065

REACTIONS (8)
  - Dysphagia [Unknown]
  - Paraesthesia [Unknown]
  - Muscular weakness [Unknown]
  - Asthenia [Unknown]
  - Coordination abnormal [Unknown]
  - Pain [Unknown]
  - Hypoaesthesia [Unknown]
  - Fatigue [Unknown]
